FAERS Safety Report 8796626 (Version 2)
Quarter: 2012Q4

REPORT INFORMATION
  Report Type: Report from Study
  Country: DE (occurrence: DE)
  Receive Date: 20120919
  Receipt Date: 20121105
  Transmission Date: 20130627
  Serious: Yes (Hospitalization)
  Sender: FDA-Public Use
  Company Number: DE-ROCHE-1103119

PATIENT
  Age: 66 Year
  Sex: Female
  Weight: 58.3 kg

DRUGS (2)
  1. CARBOPLATIN [Suspect]
     Indication: OVARIAN CANCER
     Dosage: last dose prior to sae on 01/Aug/2012
     Route: 042
     Dates: start: 20120801
  2. PACLITAXEL [Suspect]
     Indication: OVARIAN CANCER
     Dosage: last dose prior to sae on 01/08/2012
     Route: 042
     Dates: start: 20120801

REACTIONS (2)
  - Ascites [Recovered/Resolved]
  - Urinary tract obstruction [Recovered/Resolved]
